FAERS Safety Report 24023210 (Version 3)
Quarter: 2024Q3

REPORT INFORMATION
  Report Type: Spontaneous
  Country: FR (occurrence: FR)
  Receive Date: 20240627
  Receipt Date: 20240712
  Transmission Date: 20241017
  Serious: Yes (Other)
  Sender: ROCHE
  Company Number: FR-ROCHE-3560494

PATIENT
  Age: 80 Year
  Sex: Female

DRUGS (2)
  1. VABYSMO [Suspect]
     Active Substance: FARICIMAB\FARICIMAB-SVOA
     Indication: Neovascular age-related macular degeneration
     Route: 065
  2. EYLEA [Concomitant]
     Active Substance: AFLIBERCEPT
     Dosage: Q4W-Q6W OVER 6 MONTHS

REACTIONS (2)
  - Uveitis [Recovered/Resolved]
  - Ocular hypertension [Recovered/Resolved]

NARRATIVE: CASE EVENT DATE: 20240406
